FAERS Safety Report 21142727 (Version 1)
Quarter: 2022Q3

REPORT INFORMATION
  Report Type: Spontaneous
  Country: US (occurrence: None)
  Receive Date: 20220728
  Receipt Date: 20220728
  Transmission Date: 20221026
  Serious: Yes (Other)
  Sender: FDA-Public Use
  Company Number: None

PATIENT
  Age: 24 Year
  Sex: Female
  Weight: 140.4 kg

DRUGS (1)
  1. TRUXIMA [Suspect]
     Active Substance: RITUXIMAB-ABBS
     Indication: Glomerulonephritis membranous
     Dosage: OTHER FREQUENCY : ON DAY 1 + DAY 15;?
     Route: 042
     Dates: start: 20220711, end: 20220718

REACTIONS (8)
  - Rash erythematous [None]
  - Arthralgia [None]
  - Swelling face [None]
  - Dyspnoea [None]
  - Dry throat [None]
  - Tenderness [None]
  - Pain in jaw [None]
  - Trismus [None]

NARRATIVE: CASE EVENT DATE: 20220719
